FAERS Safety Report 6806679-9 (Version None)
Quarter: 2010Q2

REPORT INFORMATION
  Report Type: 
  Country: None (occurrence: None)
  Receive Date: 20100628
  Receipt Date: 20100628
  Transmission Date: 20101027
  Serious: Yes (Other)
  Sender: FDA-Public Use
  Company Number: None

PATIENT
  Age: 52 Year
  Sex: Female
  Weight: 102.0593 kg

DRUGS (1)
  1. TANEZUMAB UNKNOWN -CLINICAL TRIAL- PFIZER [Suspect]
     Indication: OSTEOARTHRITIS
     Dosage: Q8WEEKS IV BOLUS
     Route: 040
     Dates: start: 20090801, end: 20100418

REACTIONS (4)
  - ARTHRALGIA [None]
  - CONDITION AGGRAVATED [None]
  - HYPOAESTHESIA [None]
  - PARAESTHESIA [None]
